FAERS Safety Report 9173547 (Version 1)
Quarter: 2013Q1

REPORT INFORMATION
  Report Type: Spontaneous
  Country: US (occurrence: None)
  Receive Date: 20130318
  Receipt Date: 20130318
  Transmission Date: 20140127
  Serious: Yes (Hospitalization)
  Sender: FDA-Public Use
  Company Number: None

PATIENT
  Age: 85 Year
  Sex: Male
  Weight: 75.6 kg

DRUGS (2)
  1. RIVAROXABAN [Suspect]
     Route: 048
  2. ASPIRIN [Concomitant]

REACTIONS (2)
  - Gastrointestinal haemorrhage [None]
  - Anaemia [None]
